FAERS Safety Report 8904538 (Version 1)
Quarter: 2012Q4

REPORT INFORMATION
  Report Type: 
  Country: US (occurrence: US)
  Receive Date: 20121109
  Receipt Date: 20121109
  Transmission Date: 20130627
  Serious: Yes (Other)
  Sender: FDA-Public Use
  Company Number: US-BAYER-2012-117579

PATIENT
  Age: 69 Year
  Sex: Female
  Weight: 102.4 kg

DRUGS (3)
  1. ALKA-SELTZER PLUS DAY COLD [Suspect]
     Indication: HEADACHE
     Dosage: 1 DF, ONCE
     Route: 048
     Dates: start: 20121105, end: 20121105
  2. THYROID [Concomitant]
  3. ZOLOFT [Concomitant]

REACTIONS (1)
  - Choking [Recovered/Resolved]
